FAERS Safety Report 9912088 (Version 3)
Quarter: 2014Q1

REPORT INFORMATION
  Report Type: Report from Study
  Country: US (occurrence: US)
  Receive Date: 20140219
  Receipt Date: 20140319
  Transmission Date: 20141002
  Serious: Yes (Death)
  Sender: FDA-Public Use
  Company Number: US-ROCHE-1352836

PATIENT
  Age: 54 Year
  Sex: Male
  Weight: 153.91 kg

DRUGS (4)
  1. AVASTIN [Suspect]
     Indication: COLON CANCER
     Dosage: ONCE
     Route: 042
     Dates: start: 20121218, end: 20130227
  2. IRINOTECAN [Concomitant]
     Indication: COLON CANCER
     Dosage: ONCE/CYCLE
     Route: 042
     Dates: start: 20121218, end: 20130227
  3. LEVOLEUCOVORIN [Concomitant]
     Indication: COLON CANCER
     Dosage: ONCE/CYCLE
     Route: 042
     Dates: start: 20121218, end: 20130227
  4. FLUOROURACIL [Concomitant]
     Indication: COLON CANCER
     Dosage: 1000 MG, 6000 MG
     Route: 042
     Dates: start: 20121218, end: 20130227

REACTIONS (1)
  - Death [Fatal]
